FAERS Safety Report 12536976 (Version 4)
Quarter: 2016Q3

REPORT INFORMATION
  Report Type: Spontaneous
  Country: GB (occurrence: GB)
  Receive Date: 20160707
  Receipt Date: 20160817
  Transmission Date: 20161109
  Serious: Yes (Other)
  Sender: FDA-Public Use
  Company Number: PHHY2016GB088742

PATIENT
  Age: 62 Year
  Sex: Female

DRUGS (30)
  1. PAROXETINE HYDROCHLORIDE. [Suspect]
     Active Substance: PAROXETINE HYDROCHLORIDE
     Indication: EMOTIONAL DISTRESS
     Dosage: 40 MG
     Route: 065
     Dates: start: 20010516, end: 20050701
  2. COCODAMOL [Concomitant]
     Active Substance: ACETAMINOPHEN\CODEINE PHOSPHATE
     Indication: POLYOMAVIRUS-ASSOCIATED NEPHROPATHY
     Dosage: UNK
     Route: 065
  3. EFFEXOR [Concomitant]
     Active Substance: VENLAFAXINE HYDROCHLORIDE
     Indication: POLYOMAVIRUS-ASSOCIATED NEPHROPATHY
     Route: 065
     Dates: start: 20020106
  4. MIRTAZAPINE. [Concomitant]
     Active Substance: MIRTAZAPINE
     Indication: POLYOMAVIRUS-ASSOCIATED NEPHROPATHY
     Route: 065
     Dates: start: 200308
  5. QUETIAPINE. [Concomitant]
     Active Substance: QUETIAPINE
     Indication: POLYOMAVIRUS-ASSOCIATED NEPHROPATHY
     Dosage: UNK
     Route: 065
     Dates: start: 200703
  6. THYROXINE [Concomitant]
     Active Substance: LEVOTHYROXINE
     Indication: POLYOMAVIRUS-ASSOCIATED NEPHROPATHY
     Route: 065
     Dates: start: 20080515
  7. SALBUTAMOL [Concomitant]
     Active Substance: ALBUTEROL
     Indication: PRODUCT USED FOR UNKNOWN INDICATION
     Route: 065
  8. TRAMADOL. [Concomitant]
     Active Substance: TRAMADOL
     Indication: POLYOMAVIRUS-ASSOCIATED NEPHROPATHY
     Route: 065
     Dates: start: 200712
  9. XANAX [Concomitant]
     Active Substance: ALPRAZOLAM
     Dosage: 0.5 MG, TID
     Route: 065
  10. PAROXETINE HYDROCHLORIDE. [Suspect]
     Active Substance: PAROXETINE HYDROCHLORIDE
     Dosage: 30 MG, UNK
     Route: 065
  11. DIHYDROCODEINE [Concomitant]
     Active Substance: DIHYDROCODEINE
     Indication: POLYOMAVIRUS-ASSOCIATED NEPHROPATHY
     Dosage: UNK
     Route: 065
  12. TRAZODONE [Concomitant]
     Active Substance: TRAZODONE HYDROCHLORIDE
     Indication: POLYOMAVIRUS-ASSOCIATED NEPHROPATHY
     Route: 065
     Dates: start: 20020808
  13. ZOPICLONE [Concomitant]
     Active Substance: ZOPICLONE
     Dosage: 15 MG, UNK
     Route: 065
  14. ATORVASTATIN [Concomitant]
     Active Substance: ATORVASTATIN
     Indication: PRODUCT USED FOR UNKNOWN INDICATION
     Route: 065
  15. PREDNISOL//PREDNISOLONE [Concomitant]
     Indication: RASH
     Route: 065
  16. XANAX [Concomitant]
     Active Substance: ALPRAZOLAM
     Indication: POLYOMAVIRUS-ASSOCIATED NEPHROPATHY
     Dosage: UNK
     Route: 065
     Dates: start: 20011206
  17. PAROXETINE HYDROCHLORIDE. [Suspect]
     Active Substance: PAROXETINE HYDROCHLORIDE
     Dosage: 5 MG, UNK
     Route: 065
  18. LEVOTHYROXINE SODIUM. [Concomitant]
     Active Substance: LEVOTHYROXINE SODIUM
     Indication: PRODUCT USED FOR UNKNOWN INDICATION
     Route: 065
     Dates: start: 20080515
  19. ZOPICLONE [Concomitant]
     Active Substance: ZOPICLONE
     Indication: POLYOMAVIRUS-ASSOCIATED NEPHROPATHY
     Route: 065
     Dates: start: 200111
  20. SEROXAT [Suspect]
     Active Substance: PAROXETINE HYDROCHLORIDE
     Indication: PRODUCT USED FOR UNKNOWN INDICATION
     Dosage: UNK
     Route: 065
     Dates: start: 20010516
  21. PAXIL [Suspect]
     Active Substance: PAROXETINE HYDROCHLORIDE
     Indication: PRODUCT USED FOR UNKNOWN INDICATION
     Route: 065
     Dates: start: 20010516
  22. PAROXETINE HYDROCHLORIDE. [Suspect]
     Active Substance: PAROXETINE HYDROCHLORIDE
     Indication: TEARFULNESS
     Dosage: 20 MG, UNK
     Route: 065
  23. PAROXETINE HYDROCHLORIDE. [Suspect]
     Active Substance: PAROXETINE HYDROCHLORIDE
     Dosage: 10 MG, UNK
     Route: 065
  24. DIAZEPAM. [Concomitant]
     Active Substance: DIAZEPAM
     Indication: POLYOMAVIRUS-ASSOCIATED NEPHROPATHY
     Route: 065
     Dates: start: 198504
  25. DULOXETINE. [Concomitant]
     Active Substance: DULOXETINE
     Indication: POLYOMAVIRUS-ASSOCIATED NEPHROPATHY
     Route: 065
  26. QUETIAPINE. [Concomitant]
     Active Substance: QUETIAPINE
     Dosage: INCREASED TO 300 MG
     Route: 065
  27. EFFEXOR [Concomitant]
     Active Substance: VENLAFAXINE HYDROCHLORIDE
     Dosage: 150 MG
     Route: 065
  28. MELATONIN [Concomitant]
     Active Substance: MELATONIN
     Indication: POLYOMAVIRUS-ASSOCIATED NEPHROPATHY
     Route: 065
     Dates: start: 200708
  29. PROMETHAZINE [Concomitant]
     Active Substance: PROMETHAZINE\PROMETHAZINE HYDROCHLORIDE
     Indication: POLYOMAVIRUS-ASSOCIATED NEPHROPATHY
     Route: 065
     Dates: start: 200107
  30. TIOTROPIUM [Concomitant]
     Active Substance: TIOTROPIUM
     Indication: PRODUCT USED FOR UNKNOWN INDICATION
     Route: 055

REACTIONS (31)
  - Respiratory disorder [Unknown]
  - Insomnia [Unknown]
  - Restlessness [Unknown]
  - Asthenia [Unknown]
  - Morbid thoughts [Unknown]
  - Depressed mood [Unknown]
  - Gait disturbance [Unknown]
  - Nausea [Unknown]
  - Alopecia [Unknown]
  - Anorgasmia [Unknown]
  - Agitation [Unknown]
  - Headache [Unknown]
  - Sleep disorder [Unknown]
  - Disturbance in attention [Unknown]
  - Libido decreased [Unknown]
  - Tearfulness [Unknown]
  - Confusional state [Unknown]
  - Irritability [Unknown]
  - Drug withdrawal syndrome [Unknown]
  - Arthralgia [Unknown]
  - Loss of libido [Unknown]
  - Weight increased [Unknown]
  - Nightmare [Unknown]
  - Decreased appetite [Unknown]
  - Lethargy [Unknown]
  - Psychiatric symptom [Unknown]
  - Hallucination [Unknown]
  - Onychoclasis [Unknown]
  - Malaise [Unknown]
  - Marital problem [Unknown]
  - Anxiety [Unknown]

NARRATIVE: CASE EVENT DATE: 200201
